FAERS Safety Report 9431614 (Version 1)
Quarter: 2013Q3

REPORT INFORMATION
  Report Type: Spontaneous
  Country: US (occurrence: US)
  Receive Date: 20130731
  Receipt Date: 20130731
  Transmission Date: 20140515
  Serious: Yes (Hospitalization)
  Sender: FDA-Public Use
  Company Number: US-BIOGENIDEC-2013BI067690

PATIENT
  Sex: Male
  Weight: 3 kg

DRUGS (1)
  1. AVONEX [Suspect]
     Indication: EXPOSURE VIA FATHER
     Dates: start: 20110926

REACTIONS (1)
  - Jaundice [Not Recovered/Not Resolved]
